FAERS Safety Report 26151465 (Version 2)
Quarter: 2025Q4

REPORT INFORMATION
  Report Type: Report from Study
  Country: IN (occurrence: IN)
  Receive Date: 20251212
  Receipt Date: 20251223
  Transmission Date: 20260118
  Serious: Yes (Other)
  Sender: TAKEDA
  Company Number: IN-JNJFOC-20251201707

PATIENT
  Age: 52 Year
  Sex: Male
  Weight: 85 kg

DRUGS (6)
  1. BORTEZOMIB [Suspect]
     Active Substance: BORTEZOMIB
     Indication: Plasma cell myeloma refractory
     Dosage: UNK
  2. DEXAMETHASONE [Suspect]
     Active Substance: DEXAMETHASONE
     Indication: Plasma cell myeloma refractory
     Dosage: UNK
  3. DARZALEX [Suspect]
     Active Substance: DARATUMUMAB
     Indication: Plasma cell myeloma refractory
     Dosage: 1200 MILLIGRAM, 1/WEEK
     Dates: start: 20250422, end: 20250707
  4. DARZALEX [Suspect]
     Active Substance: DARATUMUMAB
     Dosage: 800 MILLIGRAM, 1/WEEK
     Dates: start: 20251121
  5. DARZALEX [Suspect]
     Active Substance: DARATUMUMAB
     Dosage: 16 MILLIGRAM/KILOGRAM, 1/WEEK
  6. POMALIDOMIDE [Suspect]
     Active Substance: POMALIDOMIDE
     Indication: Plasma cell myeloma refractory
     Dosage: UNK

REACTIONS (5)
  - Accident [Recovered/Resolved]
  - Plasma cell myeloma [Unknown]
  - Diabetes mellitus [Not Recovered/Not Resolved]
  - Spinal fracture [Unknown]
  - Vertebral lesion [Recovered/Resolved]
